FAERS Safety Report 7309313-7 (Version None)
Quarter: 2011Q1

REPORT INFORMATION
  Report Type: 
  Country: None (occurrence: None)
  Receive Date: 20110223
  Receipt Date: 20110210
  Transmission Date: 20110831
  Serious: Yes (Hospitalization, Other)
  Sender: FDA-Public Use
  Company Number: US-ELI_LILLY_AND_COMPANY-US201003008439

PATIENT
  Sex: Female

DRUGS (10)
  1. FORTEO [Suspect]
     Indication: OSTEOPOROSIS
     Dosage: 20 UG, DAILY (1/D)
     Route: 065
  2. KLONOPIN [Concomitant]
     Dosage: 0.5 MG, 2/D
  3. ALLEGRA [Concomitant]
     Dosage: 180 MG, UNK
  4. PREVACID [Concomitant]
     Dosage: 30 MG, 2/D
  5. NEURONTIN [Concomitant]
     Dosage: 800 MG, 2/D
  6. CEPHALEXIN [Concomitant]
     Dosage: 500 MG, 3/D
  7. KLOR-CON [Concomitant]
  8. MS CONTIN [Concomitant]
     Dosage: 15 MG, 3/D
  9. FORTEO [Suspect]
     Dosage: 20 UG, DAILY (1/D)
     Route: 065
  10. PREDNISONE [Concomitant]
     Dosage: 10 MG, DAILY (1/D)

REACTIONS (13)
  - SEPSIS [None]
  - PYREXIA [None]
  - ASTHENIA [None]
  - RHEUMATOID ARTHRITIS [None]
  - PAIN IN EXTREMITY [None]
  - LIMB INJURY [None]
  - SKIN IRRITATION [None]
  - INJECTION SITE URTICARIA [None]
  - LOCALISED OEDEMA [None]
  - SKIN DISCOLOURATION [None]
  - HYPOTENSION [None]
  - STREPTOCOCCAL INFECTION [None]
  - SKIN CHAPPED [None]
